FAERS Safety Report 8802943 (Version 1)
Quarter: 2012Q4

REPORT INFORMATION
  Report Type: 
  Country: US (occurrence: US)
  Receive Date: 20120924
  Receipt Date: 20120924
  Transmission Date: 20130627
  Serious: Yes (Disabling, Other)
  Sender: FDA-Public Use
  Company Number: US-PFIZER INC-2012234585

PATIENT
  Age: 50 Year
  Sex: Female
  Weight: 123 kg

DRUGS (10)
  1. LYRICA [Suspect]
     Indication: FIBROMYALGIA
     Dosage: 50 mg, 2x/day
     Route: 048
     Dates: end: 201204
  2. LEVOTHYROXINE [Concomitant]
     Indication: HYPOTHYROIDISM
     Dosage: UNK
  3. ALLOPURINOL [Concomitant]
     Indication: GOUT
     Dosage: UNK
  4. METFORMIN [Concomitant]
     Dosage: UNK
  5. GLYBURIDE [Concomitant]
     Dosage: UNK
  6. JANUVIA [Concomitant]
     Dosage: UNK
  7. ATENOLOL [Concomitant]
     Dosage: UNK
  8. LISINOPRIL [Concomitant]
     Dosage: UNK
  9. ATORVASTATIN [Concomitant]
     Dosage: UNK
  10. EFFEXOR [Concomitant]
     Dosage: UNK

REACTIONS (3)
  - Arthritis [Unknown]
  - Staphylococcal infection [Unknown]
  - Laboratory test abnormal [Unknown]
